FAERS Safety Report 5397729-8 (Version None)
Quarter: 2007Q3

REPORT INFORMATION
  Report Type: 
  Country: None (occurrence: None)
  Receive Date: 20070723
  Receipt Date: 20070723
  Transmission Date: 20080115
  Serious: Yes (Other)
  Sender: FDA-Public Use
  Company Number: None

PATIENT
  Age: 57 Year
  Sex: Female
  Weight: 83.9154 kg

DRUGS (1)
  1. KAREWAY FLUORIDE ANTICAVITY TOOTHPASETE    KAREWAY [Suspect]
     Dates: start: 20070101, end: 20070501

REACTIONS (6)
  - DENTAL IMPLANTATION [None]
  - GINGIVAL DISORDER [None]
  - IMPAIRED HEALING [None]
  - IMPLANT SITE HAEMORRHAGE [None]
  - IMPLANT SITE REACTION [None]
  - OPEN WOUND [None]
